FAERS Safety Report 4458236-X (Version None)
Quarter: 2004Q3

REPORT INFORMATION
  Report Type: 
  Country: None (occurrence: None)
  Receive Date: 20040917
  Receipt Date: 20040310
  Transmission Date: 20050211
  Serious: Yes (Hospitalization)
  Sender: FDA-Public Use
  Company Number: US-JNJFOC-20040303029

PATIENT
  Age: 3 Year
  Sex: 0

DRUGS (1)
  1. TOPAMAX [Suspect]
     Dosage: ORAL
     Route: 048

REACTIONS (2)
  - METABOLIC ACIDOSIS [None]
  - PNEUMONIA [None]
